FAERS Safety Report 22938035 (Version 2)
Quarter: 2024Q3

REPORT INFORMATION
  Report Type: Spontaneous
  Country: BR (occurrence: BR)
  Receive Date: 20230913
  Receipt Date: 20240930
  Transmission Date: 20241017
  Serious: Yes (Disabling, Other)
  Sender: CELLTRION
  Company Number: BR-CELLTRION INC.-2023BR006336

PATIENT

DRUGS (7)
  1. INFLIXIMAB [Suspect]
     Active Substance: INFLIXIMAB
     Indication: Rheumatoid arthritis
     Dosage: 2 AMPOULES EVERY 2 MONTHS
     Route: 042
     Dates: start: 20230119
  2. INFLIXIMAB [Suspect]
     Active Substance: INFLIXIMAB
     Dosage: 2 AMPOULES EVERY 2 MONTHS
     Route: 042
     Dates: start: 20230424
  3. METHOTREXATE [Concomitant]
     Active Substance: METHOTREXATE
     Indication: Rheumatoid arthritis
     Dosage: 1 CAPSULE PER WEEK (STARTED 10 YEARS AGO)
     Route: 048
  4. PREDNISONE [Concomitant]
     Active Substance: PREDNISONE
     Indication: Rheumatoid arthritis
     Dosage: 1 CAPSULE PER DAY (STARTED 20 YEARS AGO)
     Route: 048
  5. HYDROCHLOROTHIAZIDE [Concomitant]
     Active Substance: HYDROCHLOROTHIAZIDE
     Indication: Hypertension
     Dosage: 1 CAPSULE PER DAY (STARTED 3 YEARS AGO)
     Route: 048
  6. LOSARTAN [Concomitant]
     Active Substance: LOSARTAN\LOSARTAN POTASSIUM
     Indication: Hypertension
     Dosage: 1 CAPSULE PER DAY (STARTED 3 YEARS AGO)
     Route: 048
  7. METAMIZOLE SODIUM [Concomitant]
     Active Substance: METAMIZOLE SODIUM
     Indication: Pain
     Dosage: 2 CAPSULE PER DAY (STARTED 10 YEARS AGO)
     Route: 048

REACTIONS (7)
  - Limb operation [Unknown]
  - Mobility decreased [Unknown]
  - Oedema peripheral [Unknown]
  - Pyrexia [Unknown]
  - Product availability issue [Unknown]
  - Therapy interrupted [Unknown]
  - Intentional dose omission [Unknown]
